FAERS Safety Report 7023455-5 (Version None)
Quarter: 2010Q3

REPORT INFORMATION
  Report Type: 
  Country: None (occurrence: None)
  Receive Date: 20100929
  Receipt Date: 20100722
  Transmission Date: 20110219
  Serious: Yes (Other)
  Sender: FDA-Public Use
  Company Number: 00000278

PATIENT
  Age: 75 Year
  Sex: Female

DRUGS (6)
  1. ZOLPIDEM TARTRATE [Suspect]
     Indication: SLEEP DISORDER
     Dates: start: 20100622, end: 20100628
  2. SEROQUEL [Concomitant]
  3. XANAX [Concomitant]
  4. RESTORIL [Concomitant]
  5. CRESTOR [Concomitant]
  6. LAVOSA [Concomitant]

REACTIONS (14)
  - ANXIETY [None]
  - BLOOD UREA INCREASED [None]
  - DYSPNOEA [None]
  - EYE PAIN [None]
  - FALL [None]
  - GLOMERULAR FILTRATION RATE DECREASED [None]
  - HEADACHE [None]
  - LOSS OF CONSCIOUSNESS [None]
  - MIGRAINE [None]
  - NIGHTMARE [None]
  - PARALYSIS [None]
  - POLLAKIURIA [None]
  - RENAL DISORDER [None]
  - TREMOR [None]
